FAERS Safety Report 9355372 (Version 1)
Quarter: 2013Q2

REPORT INFORMATION
  Report Type: Spontaneous
  Country: US (occurrence: None)
  Receive Date: 20130618
  Receipt Date: 20130618
  Transmission Date: 20140414
  Serious: Yes (Hospitalization)
  Sender: FDA-Public Use
  Company Number: None

PATIENT
  Age: 84 Year
  Sex: Male
  Weight: 77.5 kg

DRUGS (2)
  1. DABIGATRAN [Suspect]
     Route: 048
  2. SITAGLIPTIN [Suspect]
     Indication: DIABETES MELLITUS
     Route: 048
     Dates: start: 20121113, end: 20121128

REACTIONS (9)
  - Bradycardia [None]
  - Syncope [None]
  - Blood potassium increased [None]
  - Blood creatinine increased [None]
  - Blood urea increased [None]
  - International normalised ratio increased [None]
  - Haemoglobin decreased [None]
  - Haematocrit decreased [None]
  - Alanine aminotransferase increased [None]
